FAERS Safety Report 21540640 (Version 1)
Quarter: 2022Q4

REPORT INFORMATION
  Report Type: Report from Study
  Country: US (occurrence: None)
  Receive Date: 20221102
  Receipt Date: 20221102
  Transmission Date: 20230113
  Serious: Yes (Other)
  Sender: FDA-Public Use
  Company Number: US-ROCHE-3209507

PATIENT

DRUGS (2)
  1. VENETOCLAX [Suspect]
     Active Substance: VENETOCLAX
     Indication: Overlap syndrome
     Dosage: ON 12/OCT/2022, MOST RECENT DOSE OF VENETOCLAX WAS ADMINISTERED.
     Route: 065
  2. TACROLIMUS [Suspect]
     Active Substance: TACROLIMUS
     Indication: Overlap syndrome
     Route: 065

REACTIONS (1)
  - Tumour lysis syndrome [Unknown]
